FAERS Safety Report 8912146 (Version 2)
Quarter: 2012Q4

REPORT INFORMATION
  Report Type: 
  Country: MX (occurrence: MX)
  Receive Date: 20121116
  Receipt Date: 20121126
  Transmission Date: 20130627
  Serious: Yes (Other)
  Sender: FDA-Public Use
  Company Number: MX-ELI_LILLY_AND_COMPANY-MX201211002430

PATIENT
  Sex: Female

DRUGS (2)
  1. CYMBALTA [Suspect]
     Indication: DEPRESSION
     Dosage: 60 mg, qd
     Dates: start: 2010
  2. CYMBALTA [Suspect]
     Dosage: 30 mg, qd

REACTIONS (1)
  - Hepatitis C [Unknown]
